FAERS Safety Report 9233371 (Version 1)
Quarter: 2013Q2

REPORT INFORMATION
  Report Type: Spontaneous
  Country: US (occurrence: None)
  Receive Date: 20130415
  Receipt Date: 20130415
  Transmission Date: 20140414
  Serious: Yes (Other)
  Sender: FDA-Public Use
  Company Number: None

PATIENT
  Age: 63 Year
  Sex: Female
  Weight: 83.92 kg

DRUGS (1)
  1. CELEBREX [Suspect]
     Indication: OSTEOARTHRITIS
     Route: 048
     Dates: start: 20120401, end: 20120801

REACTIONS (8)
  - Pain [None]
  - Pruritus [None]
  - Hypersensitivity [None]
  - Paraesthesia [None]
  - Paraesthesia oral [None]
  - Hypoaesthesia [None]
  - Throat tightness [None]
  - Product contamination [None]
